FAERS Safety Report 18551253 (Version 1)
Quarter: 2020Q4

REPORT INFORMATION
  Report Type: Spontaneous
  Country: FR (occurrence: FR)
  Receive Date: 20201126
  Receipt Date: 20201126
  Transmission Date: 20210114
  Serious: Yes (Life-Threatening)
  Sender: FDA-Public Use
  Company Number: FR-BAUSCH-BL-2020-033764

PATIENT
  Age: 22 Year
  Sex: Female

DRUGS (11)
  1. NAROPEINE [Suspect]
     Active Substance: ROPIVACAINE HYDROCHLORIDE
     Indication: GENERAL ANAESTHESIA
     Route: 040
     Dates: start: 20190920, end: 20190920
  2. ACUPAN [Suspect]
     Active Substance: NEFOPAM HYDROCHLORIDE
     Indication: PAIN
     Dosage: TOTAL
     Route: 040
     Dates: start: 20190920, end: 20190920
  3. HYPNOVEL [Suspect]
     Active Substance: MIDAZOLAM
     Indication: GENERAL ANAESTHESIA
     Dosage: TOTAL
     Route: 040
     Dates: start: 20190920, end: 20190920
  4. CEFAZOLINE [Suspect]
     Active Substance: CEFAZOLIN SODIUM
     Indication: ANTIBIOTIC PROPHYLAXIS
     Dosage: TOTAL
     Route: 040
     Dates: start: 20190920, end: 20190920
  5. PERFALGAN [Suspect]
     Active Substance: ACETAMINOPHEN
     Indication: PAIN
     Dosage: TOTAL
     Route: 041
     Dates: start: 20190920, end: 20190920
  6. KETAMINE [Suspect]
     Active Substance: KETAMINE
     Indication: GENERAL ANAESTHESIA
     Dosage: TOTAL
     Route: 040
     Dates: start: 20190920, end: 20190920
  7. DEXAMETHASONE. [Suspect]
     Active Substance: DEXAMETHASONE
     Indication: PROPHYLAXIS
     Dosage: TOTAL
     Route: 040
     Dates: start: 20190920, end: 20190920
  8. SUFENTANIL [Suspect]
     Active Substance: SUFENTANIL
     Indication: GENERAL ANAESTHESIA
     Dosage: 25 PLUS 15 MICROGRAM
     Route: 041
     Dates: start: 20190920, end: 20190920
  9. DROLEPTAN [Suspect]
     Active Substance: DROPERIDOL
     Indication: PROPHYLAXIS
     Dosage: TOTAL
     Route: 040
     Dates: start: 20190920, end: 20190920
  10. PROFENID [Suspect]
     Active Substance: KETOPROFEN
     Indication: PAIN
     Dosage: TOTAL
     Route: 040
     Dates: start: 20190920, end: 20190920
  11. DIPRIVAN [Suspect]
     Active Substance: PROPOFOL
     Indication: GENERAL ANAESTHESIA
     Dosage: TOTAL
     Route: 040
     Dates: start: 20190920, end: 20190920

REACTIONS (4)
  - Hypotension [Recovered/Resolved]
  - Tachycardia [Recovered/Resolved]
  - Oxygen saturation decreased [Recovered/Resolved]
  - Urticaria [Recovered/Resolved]

NARRATIVE: CASE EVENT DATE: 20190920
